FAERS Safety Report 6932429-1 (Version None)
Quarter: 2010Q3

REPORT INFORMATION
  Report Type: 
  Country: None (occurrence: None)
  Receive Date: 20100819
  Receipt Date: 20100807
  Transmission Date: 20110219
  Serious: Yes (Hospitalization, Other)
  Sender: FDA-Public Use
  Company Number: US-PFIZER INC-2010100200

PATIENT
  Sex: Female
  Weight: 62.6 kg

DRUGS (12)
  1. LYRICA [Suspect]
     Indication: FIBROMYALGIA
     Dosage: UNK
     Route: 048
     Dates: start: 20090501
  2. LYRICA [Suspect]
     Dosage: 225 MG, 2X/DAY
     Route: 048
  3. MILNACIPRAN HYDROCHLORIDE [Suspect]
     Indication: FIBROMYALGIA
     Dosage: 50 MG, 2X/DAY
     Route: 048
  4. ETODOLAC [Concomitant]
     Indication: ARTHRITIS
     Dosage: 400 MG, 3X/DAY
     Route: 048
  5. MONTELUKAST SODIUM [Concomitant]
     Indication: ASTHMA
     Dosage: 10 MG, 1X/DAY
     Route: 048
  6. HYDROCHLOROTHIAZIDE [Concomitant]
     Indication: HYPERTENSION
     Dosage: 25 MG, 1X/DAY
     Route: 048
  7. LOSARTAN [Concomitant]
     Indication: HYPERTENSION
     Dosage: 100 MG, 1X/DAY
     Route: 048
  8. FLONASE [Concomitant]
     Indication: HYPERSENSITIVITY
     Dosage: UNK
     Route: 045
  9. BENADRYL [Concomitant]
     Indication: HYPERSENSITIVITY
     Dosage: UNK
  10. CYCLOBENZAPRINE [Concomitant]
     Indication: FIBROMYALGIA
     Dosage: 10 MG, 3X/DAY, AS NEEDED
     Route: 048
  11. COZAAR [Concomitant]
     Indication: HYPERTENSION
     Dosage: UNK
     Route: 048
  12. AMOXICILLIN [Concomitant]
     Indication: SINUSITIS
     Dosage: UNK

REACTIONS (6)
  - CONFUSIONAL STATE [None]
  - DRUG INEFFECTIVE [None]
  - HEAD INJURY [None]
  - NEUROPATHY PERIPHERAL [None]
  - VISION BLURRED [None]
  - WEIGHT INCREASED [None]
